FAERS Safety Report 19413624 (Version 1)
Quarter: 2021Q2

REPORT INFORMATION
  Report Type: Spontaneous
  Country: US (occurrence: US)
  Receive Date: 20210614
  Receipt Date: 20210614
  Transmission Date: 20210717
  Serious: Yes (Other)
  Sender: FDA-Public Use
  Company Number: US-ASTRAZENECA-2021A516831

PATIENT
  Sex: Female
  Weight: 63.5 kg

DRUGS (1)
  1. SYMLIN [Suspect]
     Active Substance: PRAMLINTIDE ACETATE
     Indication: DIABETES MELLITUS
     Dosage: TAKE HIGHER AMOUNTS OF SYMLIN THAN THE RECOMMENDED 120MCG BEFORE MEALS
     Route: 058
     Dates: start: 2006

REACTIONS (2)
  - Leukaemia [Not Recovered/Not Resolved]
  - Product dose omission issue [Unknown]

NARRATIVE: CASE EVENT DATE: 201903
